FAERS Safety Report 21585618 (Version 1)
Quarter: 2022Q4

REPORT INFORMATION
  Report Type: Spontaneous
  Country: SK (occurrence: SK)
  Receive Date: 20221111
  Receipt Date: 20221111
  Transmission Date: 20230112
  Serious: Yes (Death, Hospitalization, Other)
  Sender: FDA-Public Use
  Company Number: SK-SAMIL-GLO2021SK004980

PATIENT
  Age: 33 Year
  Sex: Female

DRUGS (5)
  1. AZATHIOPRINE [Suspect]
     Active Substance: AZATHIOPRINE
     Indication: Colitis ulcerative
     Dosage: UNK
     Route: 065
  2. AZATHIOPRINE [Suspect]
     Active Substance: AZATHIOPRINE
     Indication: Immunosuppressant drug therapy
  3. LINEZOLID [Suspect]
     Active Substance: LINEZOLID
     Indication: Product used for unknown indication
     Dosage: UNK
     Route: 065
  4. FLUCONAZOLE [Suspect]
     Active Substance: FLUCONAZOLE
     Indication: Antifungal treatment
     Dosage: UNK
     Route: 051
  5. CEFUROXIME [Concomitant]
     Active Substance: CEFUROXIME
     Indication: Antibiotic therapy
     Dosage: UNK
     Route: 051

REACTIONS (30)
  - Respiratory failure [Fatal]
  - Drug-induced liver injury [Fatal]
  - Pancytopenia [Fatal]
  - Septic shock [Fatal]
  - Myelosuppression [Fatal]
  - Dysbiosis [Fatal]
  - Gastrointestinal disorder [Fatal]
  - Coronavirus infection [Fatal]
  - Drug ineffective [Fatal]
  - Mediastinal effusion [Unknown]
  - Pericardial effusion [Unknown]
  - Pneumonia [Unknown]
  - Fibrin D dimer increased [Unknown]
  - C-reactive protein increased [Unknown]
  - Cough [Unknown]
  - Cardiac disorder [Unknown]
  - Multiple organ dysfunction syndrome [Unknown]
  - Respiratory disorder [Unknown]
  - Atrioventricular block complete [Unknown]
  - Cholestasis [Unknown]
  - Pleural effusion [Unknown]
  - Hepatosplenomegaly [Unknown]
  - Oxygen saturation decreased [Unknown]
  - Chills [Unknown]
  - Transaminases increased [Unknown]
  - Lymphopenia [Unknown]
  - Candida infection [Unknown]
  - Pyrexia [Unknown]
  - Blood bilirubin increased [Unknown]
  - Malaise [Unknown]
